FAERS Safety Report 8077780-X (Version None)
Quarter: 2012Q1

REPORT INFORMATION
  Report Type: 
  Country: None (occurrence: None)
  Receive Date: 20120127
  Receipt Date: 20120120
  Transmission Date: 20120608
  Serious: Yes (Other)
  Sender: FDA-Public Use
  Company Number: CHPA2012US001777

PATIENT
  Age: 42 Year
  Sex: Female

DRUGS (1)
  1. EXCEDRIN (MIGRAINE) [Suspect]
     Indication: MIGRAINE
     Dosage: 2-4 DF, PRN
     Route: 048
     Dates: start: 20070101, end: 20120117

REACTIONS (5)
  - OVERDOSE [None]
  - NAUSEA [None]
  - INSOMNIA [None]
  - MIGRAINE [None]
  - BLOOD PRESSURE DECREASED [None]
